FAERS Safety Report 25219813 (Version 1)
Quarter: 2025Q2

REPORT INFORMATION
  Report Type: Spontaneous
  Country: US (occurrence: US)
  Receive Date: 20250421
  Receipt Date: 20250421
  Transmission Date: 20250716
  Serious: Yes (Life-Threatening, Hospitalization)
  Sender: DR REDDYS
  Company Number: None

PATIENT
  Age: 65 Year
  Sex: Female

DRUGS (3)
  1. DOCETAXEL [Suspect]
     Active Substance: DOCETAXEL
     Indication: Cervix carcinoma stage IV
  2. DOCETAXEL [Suspect]
     Active Substance: DOCETAXEL
     Indication: Cervix carcinoma recurrent
  3. DOCETAXEL [Suspect]
     Active Substance: DOCETAXEL
     Indication: Metastases to liver

REACTIONS (2)
  - Tumour lysis syndrome [Unknown]
  - Acute kidney injury [Unknown]
